FAERS Safety Report 9474609 (Version 1)
Quarter: 2013Q3

REPORT INFORMATION
  Report Type: Spontaneous
  Country: IT (occurrence: IT)
  Receive Date: 20130823
  Receipt Date: 20130823
  Transmission Date: 20140515
  Serious: Yes (Other)
  Sender: FDA-Public Use
  Company Number: IT-GLAXOSMITHKLINE-B0917296A

PATIENT
  Age: 8 Year
  Sex: 0

DRUGS (3)
  1. LAMICTAL [Suspect]
     Indication: EPILEPSY
     Dosage: 5MG PER DAY
     Route: 048
     Dates: start: 20130716, end: 20130724
  2. SODIUM VALPROATE [Concomitant]
     Indication: EPILEPSY
     Dosage: 300MG PER DAY
  3. KEPPRA [Concomitant]
     Indication: EPILEPSY
     Dosage: 100MGML PER DAY

REACTIONS (1)
  - Hypersensitivity vasculitis [Unknown]
